FAERS Safety Report 13767053 (Version 6)
Quarter: 2019Q3

REPORT INFORMATION
  Report Type: Report from Study
  Country: US (occurrence: US)
  Receive Date: 20170719
  Receipt Date: 20190815
  Transmission Date: 20191004
  Serious: Yes (Other)
  Sender: FDA-Public Use
  Company Number: US-ALEXION PHARMACEUTICALS INC.-A201707821

PATIENT
  Sex: Female

DRUGS (2)
  1. SOLIRIS [Suspect]
     Active Substance: ECULIZUMAB
     Dosage: UNK
     Route: 065
     Dates: end: 20180503
  2. SOLIRIS [Suspect]
     Active Substance: ECULIZUMAB
     Indication: ATYPICAL HAEMOLYTIC URAEMIC SYNDROME
     Dosage: UNK
     Route: 042

REACTIONS (12)
  - Dementia with Lewy bodies [Unknown]
  - Musculoskeletal stiffness [Unknown]
  - Fatigue [Unknown]
  - Crying [Unknown]
  - Somnambulism [Unknown]
  - Fall [Unknown]
  - Dysarthria [Unknown]
  - Rapid eye movement sleep behaviour disorder [Unknown]
  - Dyspnoea [Unknown]
  - Sleep disorder [Unknown]
  - Hallucination, visual [Unknown]
  - Muscular weakness [Unknown]

NARRATIVE: CASE EVENT DATE: 201707
